FAERS Safety Report 7624019-2 (Version None)
Quarter: 2011Q3

REPORT INFORMATION
  Report Type: 
  Country: None (occurrence: None)
  Receive Date: 20110720
  Receipt Date: 20110713
  Transmission Date: 20111222
  Serious: Yes (Other)
  Sender: FDA-Public Use
  Company Number: AU-MERCK-1107USA01765

PATIENT
  Sex: Female
  Weight: 42 kg

DRUGS (1)
  1. FOSAMAX PLUS D [Suspect]
     Indication: OSTEOPOROSIS
     Route: 048
     Dates: start: 20000301, end: 20110616

REACTIONS (2)
  - FRACTURE [None]
  - IMPAIRED HEALING [None]
